FAERS Safety Report 16072129 (Version 1)
Quarter: 2019Q1

REPORT INFORMATION
  Report Type: Spontaneous
  Country: IT (occurrence: IT)
  Receive Date: 20190314
  Receipt Date: 20190314
  Transmission Date: 20190418
  Serious: Yes (Hospitalization, Other)
  Sender: FDA-Public Use
  Company Number: IT-TEVA-2019-IT-1023180

PATIENT
  Age: 61 Year
  Sex: Female

DRUGS (14)
  1. CALCIUM CARBONATE. [Concomitant]
     Active Substance: CALCIUM CARBONATE
     Indication: HYPOCALCAEMIA
     Route: 065
  2. OLMESARTAN [Concomitant]
     Active Substance: OLMESARTAN
     Indication: HYPERTENSION
     Route: 065
  3. PREDNISONE. [Suspect]
     Active Substance: PREDNISONE
     Indication: IMMUNOSUPPRESSION
     Dosage: 20 MILLIGRAM DAILY;
     Route: 065
  4. TACROLIMUS. [Suspect]
     Active Substance: TACROLIMUS
     Indication: IMMUNOSUPPRESSION
     Route: 065
  5. METHYLPREDNISOLONE. [Suspect]
     Active Substance: METHYLPREDNISOLONE
     Indication: IMMUNOSUPPRESSION
     Route: 042
  6. VITAMIN D [Concomitant]
     Active Substance: CHOLECALCIFEROL
     Indication: HYPOCALCAEMIA
     Route: 065
  7. EVEROLIMUS. [Suspect]
     Active Substance: EVEROLIMUS
     Indication: IMMUNOSUPPRESSION
     Dosage: A TARGET OF 6-8 NG/ML DURING THE FIRST MONTH AND 4-6 NG/ML DURING THE SECOND MONTH.
     Route: 042
  8. AMLODIPINE [Concomitant]
     Active Substance: AMLODIPINE BESYLATE
     Indication: HYPERTENSION
     Route: 065
  9. PENTAMIDINE [Suspect]
     Active Substance: PENTAMIDINE
     Indication: PROPHYLAXIS
     Dosage: 1 VIAL PER AEROSOL
     Route: 065
  10. VALGANCICLOVIR. [Suspect]
     Active Substance: VALGANCICLOVIR
     Indication: PROPHYLAXIS
     Route: 065
  11. PREDNISONE. [Suspect]
     Active Substance: PREDNISONE
     Dosage: 5 MILLIGRAM DAILY;
  12. CEFTAZIDIME. [Concomitant]
     Active Substance: CEFTAZIDIME
     Dosage: 2 GRAM DAILY;
     Route: 042
  13. MYCOPHENOLATE MOFETIL. [Suspect]
     Active Substance: MYCOPHENOLATE MOFETIL
     Indication: IMMUNOSUPPRESSION
     Route: 065
  14. THYMOGLOBULIN [Suspect]
     Active Substance: LAPINE T-LYMPHOCYTE IMMUNE GLOBULIN
     Indication: IMMUNOSUPPRESSION
     Route: 065

REACTIONS (15)
  - Pneumocystis jirovecii pneumonia [Recovered/Resolved]
  - Acute kidney injury [Recovering/Resolving]
  - Drug ineffective [Unknown]
  - Renal tubular necrosis [Recovering/Resolving]
  - Hypotension [Recovering/Resolving]
  - Pyelonephritis [Recovering/Resolving]
  - Bacterial sepsis [Recovered/Resolved]
  - Respiratory failure [Recovering/Resolving]
  - Urinary tract infection [Recovered/Resolved]
  - Oral herpes [Recovered/Resolved]
  - Hypercalcaemia [Recovered/Resolved]
  - Escherichia infection [Recovered/Resolved]
  - Leukopenia [Recovering/Resolving]
  - Cytomegalovirus gastrointestinal infection [Recovered/Resolved]
  - Hypocapnia [Recovering/Resolving]

NARRATIVE: CASE EVENT DATE: 201609
